FAERS Safety Report 8315249-5 (Version None)
Quarter: 2012Q2

REPORT INFORMATION
  Report Type: 
  Country: None (occurrence: None)
  Receive Date: 20120426
  Receipt Date: 20120423
  Transmission Date: 20120825
  Serious: Yes (Life-Threatening, Other)
  Sender: FDA-Public Use
  Company Number: PHEH2012US008575

PATIENT
  Sex: Female

DRUGS (3)
  1. COMTAN [Suspect]
     Dosage: 5 DF, QD
  2. SINEMET [Concomitant]
  3. COMTAN [Suspect]
     Dosage: UNK UKN, UNK

REACTIONS (7)
  - DRY MOUTH [None]
  - HAEMORRHAGE [None]
  - TONGUE DISORDER [None]
  - MOVEMENT DISORDER [None]
  - FEELING ABNORMAL [None]
  - SUICIDE ATTEMPT [None]
  - ABNORMAL BEHAVIOUR [None]
